FAERS Safety Report 6956567-2 (Version None)
Quarter: 2010Q3

REPORT INFORMATION
  Report Type: 
  Country: None (occurrence: None)
  Receive Date: 20100830
  Receipt Date: 20100819
  Transmission Date: 20110219
  Serious: Yes (Other)
  Sender: FDA-Public Use
  Company Number: US-PFIZER INC-2010105558

PATIENT
  Sex: Male
  Weight: 90 kg

DRUGS (11)
  1. CHANTIX [Suspect]
     Indication: SMOKING CESSATION THERAPY
     Dosage: 0.5 MG, 1X/DAY
     Route: 048
     Dates: start: 20090101, end: 20090101
  2. CHANTIX [Suspect]
     Dosage: 1 MG, 2X/DAY
     Route: 048
     Dates: start: 20100727, end: 20100817
  3. LISINOPRIL [Concomitant]
     Indication: HYPERTENSION
     Dosage: UNK
  4. SIMVASTATIN [Concomitant]
     Indication: BLOOD CHOLESTEROL INCREASED
     Dosage: UNK
  5. XANAX [Concomitant]
     Indication: ANXIETY DISORDER
     Dosage: UNK
  6. XANAX [Concomitant]
     Indication: BIPOLAR DISORDER
  7. BUSPIRONE [Concomitant]
     Indication: ANXIETY DISORDER
     Dosage: UNK
  8. BUSPIRONE [Concomitant]
     Indication: BIPOLAR DISORDER
  9. SEROQUEL [Concomitant]
     Indication: ANXIETY DISORDER
     Dosage: UNK
  10. SEROQUEL [Concomitant]
     Indication: BIPOLAR DISORDER
  11. PRILOSEC [Concomitant]
     Dosage: UNK

REACTIONS (4)
  - HYPERCHOLESTEROLAEMIA [None]
  - RASH [None]
  - SPEECH DISORDER [None]
  - SWOLLEN TONGUE [None]
